FAERS Safety Report 4893356-7 (Version None)
Quarter: 2006Q1

REPORT INFORMATION
  Report Type: 
  Country: None (occurrence: None)
  Receive Date: 20060127
  Receipt Date: 20060105
  Transmission Date: 20060701
  Serious: Yes (Death, Hospitalization)
  Sender: FDA-Public Use
  Company Number: IT-ABBOTT-06P-083-0321339-00

PATIENT
  Sex: Male

DRUGS (18)
  1. KLACID [Suspect]
     Indication: BRONCHITIS ACUTE
     Route: 048
     Dates: start: 20051104, end: 20051115
  2. SIMVASTATIN [Suspect]
     Indication: MYOCARDIAL ISCHAEMIA
     Route: 048
     Dates: start: 20041001, end: 20051119
  3. AMIODARONE HYDROCHLORIDE [Suspect]
     Indication: VENTRICULAR FIBRILLATION
     Route: 048
     Dates: start: 20041001, end: 20051129
  4. ERITROPOIETINA DE DNA RECOMBINANTE [Concomitant]
     Indication: NEPHROGENIC ANAEMIA
     Route: 058
     Dates: start: 20050828, end: 20051130
  5. CALCIUM CARBONATE [Concomitant]
     Indication: DRUG USE FOR UNKNOWN INDICATION
  6. CLONIDINE [Concomitant]
     Indication: DRUG USE FOR UNKNOWN INDICATION
  7. ISOSORBIDE MONONITRATE [Concomitant]
     Indication: DRUG USE FOR UNKNOWN INDICATION
  8. MANIDIPINE [Concomitant]
     Indication: DRUG USE FOR UNKNOWN INDICATION
  9. FUROSEMIDE [Concomitant]
     Indication: DRUG USE FOR UNKNOWN INDICATION
     Dosage: 20 MG/2 ML
  10. ACETYLSALICYLIC ACID [Concomitant]
     Indication: DRUG USE FOR UNKNOWN INDICATION
  11. FLU VACCINE TYPE 2 [Concomitant]
     Indication: DRUG USE FOR UNKNOWN INDICATION
     Dates: start: 20051117, end: 20051117
  12. FLURBIPROFEN [Concomitant]
     Indication: MYALGIA
     Route: 048
     Dates: start: 20051119, end: 20051120
  13. LERCANIDIPINE HYDROCHLORIDE [Concomitant]
     Indication: DRUG USE FOR UNKNOWN INDICATION
  14. OMEGA-3 TRIGLYCERIDES [Concomitant]
     Indication: DRUG USE FOR UNKNOWN INDICATION
  15. ISOSORBIDE MONONITRATE [Concomitant]
  16. FUROSEMIDE [Concomitant]
  17. CLONIDINE [Concomitant]
  18. EPHINAL [Concomitant]
     Indication: DRUG USE FOR UNKNOWN INDICATION

REACTIONS (11)
  - ABASIA [None]
  - ASTHENIA [None]
  - BACK PAIN [None]
  - CARDIAC ARREST [None]
  - DYSPNOEA EXACERBATED [None]
  - GAIT DISTURBANCE [None]
  - MYALGIA [None]
  - RENAL FAILURE ACUTE [None]
  - RENAL FAILURE CHRONIC [None]
  - RHABDOMYOLYSIS [None]
  - SENSORY LOSS [None]
